FAERS Safety Report 19586655 (Version 1)
Quarter: 2021Q3

REPORT INFORMATION
  Report Type: Spontaneous
  Country: AU (occurrence: AU)
  Receive Date: 20210721
  Receipt Date: 20210721
  Transmission Date: 20211014
  Serious: Yes (Other)
  Sender: FDA-Public Use
  Company Number: AU-ALKEM LABORATORIES LIMITED-AU-ALKEM-2021-00685

PATIENT
  Sex: Female

DRUGS (2)
  1. VENLAFAXINE [Suspect]
     Active Substance: VENLAFAXINE HYDROCHLORIDE
     Indication: PRODUCT USED FOR UNKNOWN INDICATION
     Dosage: UNK
     Route: 065
  2. PARACETAMOL [Suspect]
     Active Substance: ACETAMINOPHEN
     Indication: PRODUCT USED FOR UNKNOWN INDICATION
     Dosage: UNK
     Route: 065

REACTIONS (14)
  - Circadian rhythm sleep disorder [Unknown]
  - Back pain [Unknown]
  - Anger [Unknown]
  - Emotional distress [Unknown]
  - Anxiety [Unknown]
  - Crying [Unknown]
  - Headache [Unknown]
  - Illness [Unknown]
  - Major depression [Unknown]
  - Bipolar II disorder [Unknown]
  - Fatigue [Unknown]
  - Intentional overdose [Unknown]
  - Schizoaffective disorder [Unknown]
  - Paranoia [Unknown]
